FAERS Safety Report 9302745 (Version 1)
Quarter: 2013Q2

REPORT INFORMATION
  Report Type: Report from Study
  Country: IT (occurrence: IT)
  Receive Date: 20130522
  Receipt Date: 20130522
  Transmission Date: 20140414
  Serious: Yes (Life-Threatening, Hospitalization)
  Sender: FDA-Public Use
  Company Number: IT-ASTRAZENECA-2013SE35114

PATIENT
  Age: 25864 Day
  Sex: Male
  Weight: 88 kg

DRUGS (11)
  1. VANDETANIB [Suspect]
     Indication: MEDULLARY THYROID CANCER
     Route: 048
     Dates: start: 20110601, end: 20130422
  2. EUTIROX [Concomitant]
     Indication: HYPOTHYROIDISM
     Route: 048
     Dates: start: 20110810
  3. ROCALTROL [Concomitant]
     Indication: HYPOPARATHYROIDISM
     Route: 048
     Dates: start: 20121204
  4. LACIT [Concomitant]
     Indication: HYPOPARATHYROIDISM
     Route: 048
     Dates: start: 20120718
  5. TIOBEC [Concomitant]
     Indication: PROCEDURAL PAIN
     Dates: start: 20120516
  6. PEPTAZOL [Concomitant]
     Indication: GASTRITIS PROPHYLAXIS
     Route: 048
  7. LEXOTAN [Concomitant]
     Indication: ANXIETY
     Route: 048
     Dates: start: 20120725
  8. NIMEDEX [Concomitant]
     Indication: PROCEDURAL PAIN
     Route: 048
     Dates: start: 20120725
  9. ZESTORETIC [Concomitant]
     Indication: HYPERTENSION
     Dosage: 20/12.5 MG
     Route: 048
     Dates: start: 20120907
  10. ADALAT [Concomitant]
     Indication: HYPERTENSION
     Route: 048
     Dates: start: 20111130
  11. CONTRAMAL [Concomitant]
     Indication: PROCEDURAL PAIN
     Route: 048

REACTIONS (1)
  - Myocardial infarction [Recovered/Resolved with Sequelae]
